FAERS Safety Report 5803043-6 (Version None)
Quarter: 2008Q3

REPORT INFORMATION
  Report Type: 
  Country: None (occurrence: None)
  Receive Date: 20080708
  Receipt Date: 20080627
  Transmission Date: 20090109
  Serious: Yes (Death)
  Sender: FDA-Public Use
  Company Number: JP-JNJFOC-20080606730

PATIENT
  Age: 67 Year
  Sex: Male

DRUGS (2)
  1. FENTANYL TRANSDERMAL SYSTEM [Suspect]
     Indication: DRUG USE FOR UNKNOWN INDICATION
     Route: 062
  2. MORPHINE HCL ELIXIR [Concomitant]
     Route: 042

REACTIONS (2)
  - BLOOD PRESSURE DECREASED [None]
  - DISEASE PROGRESSION [None]
